FAERS Safety Report 4937072-1 (Version None)
Quarter: 2006Q1

REPORT INFORMATION
  Report Type: 
  Country: None (occurrence: None)
  Receive Date: 20060309
  Receipt Date: 20051017
  Transmission Date: 20060701
  Serious: Yes (Hospitalization, Other)
  Sender: FDA-Public Use
  Company Number: US-MERCK-0510USA07795

PATIENT
  Age: 47 Year
  Sex: Female
  Weight: 130 kg

DRUGS (46)
  1. LORATADINE [Concomitant]
     Route: 065
  2. ALTACE [Concomitant]
     Indication: HYPERTENSION
     Route: 065
     Dates: start: 20010110, end: 20031001
  3. ZOCOR [Concomitant]
     Route: 048
  4. TEMAZEPAM [Concomitant]
     Route: 065
  5. ZOMIG [Concomitant]
     Route: 065
  6. EFFEXOR [Concomitant]
     Route: 065
  7. LISINOPRIL [Concomitant]
     Route: 065
  8. AFEDITAB CR [Concomitant]
     Route: 065
  9. DIGITEK [Concomitant]
     Route: 065
  10. METOPROLOL [Concomitant]
     Route: 065
  11. SKELAXIN [Concomitant]
     Route: 065
  12. VYTORIN [Concomitant]
     Indication: BLOOD CHOLESTEROL INCREASED
     Route: 048
  13. TENORMIN [Concomitant]
     Indication: HYPERTENSION
     Route: 065
  14. TENORMIN [Concomitant]
     Indication: CARDIAC DISORDER
     Route: 065
  15. ASPIRIN [Concomitant]
     Indication: PROPHYLAXIS
     Route: 065
  16. TYLENOL (CAPLET) [Concomitant]
     Indication: MIGRAINE
     Route: 065
  17. TYLENOL (CAPLET) [Concomitant]
     Indication: HEADACHE
     Route: 065
  18. WELLBUTRIN [Concomitant]
     Route: 065
  19. NASACORT [Concomitant]
     Route: 065
  20. LORAZEPAM [Concomitant]
     Route: 065
  21. VIOXX [Suspect]
     Indication: ARTHRITIS
     Route: 048
     Dates: start: 20010312, end: 20040615
  22. METOCLOPRAMIDE [Concomitant]
     Route: 065
  23. ALLEGRA [Concomitant]
     Route: 065
  24. AMBIEN [Concomitant]
     Route: 065
  25. ZITHROMAX [Concomitant]
     Route: 065
  26. SINGULAIR [Concomitant]
     Route: 048
  27. ZOLOFT [Concomitant]
     Indication: DEPRESSION
     Route: 065
     Dates: start: 20020301
  28. ZOLOFT [Concomitant]
     Indication: ANXIETY DISORDER
     Route: 065
     Dates: start: 20020301
  29. NASACORT [Concomitant]
     Route: 065
  30. ACCUPRIL [Concomitant]
     Indication: HYPERTENSION
     Route: 065
     Dates: start: 20010110, end: 20031001
  31. LASIX [Concomitant]
     Route: 065
     Dates: start: 20020201, end: 20050801
  32. CYCLOBENZAPRINE HYDROCHLORIDE [Concomitant]
     Route: 065
  33. HYDROCODONE HYDROCHLORIDE [Concomitant]
     Route: 065
  34. ALBUTEROL [Concomitant]
     Route: 065
  35. PREDNISONE [Concomitant]
     Route: 065
  36. DESONIDE [Concomitant]
     Route: 065
  37. TRIAMCINOLONE [Concomitant]
     Route: 065
  38. HYDROXYZINE HYDROCHLORIDE [Concomitant]
     Route: 065
  39. [THERAPY UNSPECIFIED] [Concomitant]
     Route: 065
  40. PROMETHAZINE [Concomitant]
     Route: 065
  41. LESCOL [Concomitant]
     Route: 065
  42. NAPROXEN [Concomitant]
     Route: 065
  43. ZYRTEC [Concomitant]
     Route: 065
  44. ADVAIR DISKUS 100/50 [Concomitant]
     Route: 065
  45. ALPRAZOLAM [Concomitant]
     Route: 065
  46. DICLOFENAC [Concomitant]
     Route: 065

REACTIONS (10)
  - ANXIETY DISORDER [None]
  - ASTHMA [None]
  - BLOOD CHOLESTEROL INCREASED [None]
  - CARDIAC DISORDER [None]
  - CARDIAC FAILURE CONGESTIVE [None]
  - CHEST PAIN [None]
  - DEPRESSION [None]
  - MIGRAINE [None]
  - MYOCARDIAL INFARCTION [None]
  - OBESITY [None]
